FAERS Safety Report 8271239-2 (Version None)
Quarter: 2012Q2

REPORT INFORMATION
  Report Type: 
  Country: None (occurrence: None)
  Receive Date: 20120410
  Receipt Date: 20120404
  Transmission Date: 20120825
  Serious: Yes (Other)
  Sender: FDA-Public Use
  Company Number: US-PFIZER INC-2012086384

PATIENT
  Sex: Female

DRUGS (5)
  1. PROZAC [Concomitant]
     Dosage: UNK
  2. DOXEPIN [Concomitant]
     Dosage: UNK
  3. ATRIPLA [Concomitant]
     Dosage: UNK
  4. NEURONTIN [Suspect]
     Dosage: 300 MG, 3X/DAY
     Route: 048
  5. ABILIFY [Concomitant]
     Dosage: UNK

REACTIONS (1)
  - BIPOLAR DISORDER [None]
